FAERS Safety Report 13304815 (Version 1)
Quarter: 2017Q1

REPORT INFORMATION
  Report Type: Spontaneous
  Country: US (occurrence: US)
  Receive Date: 20170307
  Receipt Date: 20170307
  Transmission Date: 20170428
  Serious: Yes (Life-Threatening, Hospitalization)
  Sender: FDA-Public Use
  Company Number: None

PATIENT
  Age: 63 Year
  Sex: Female
  Weight: 63 kg

DRUGS (1)
  1. RECLAST [Suspect]
     Active Substance: ZOLEDRONIC ACID
     Indication: OSTEOPOROSIS
     Dosage: OTHER FREQUENCY:ANNUAL;?
     Route: 042
     Dates: start: 20150701

REACTIONS (2)
  - Renal tubular necrosis [None]
  - Haemodialysis [None]

NARRATIVE: CASE EVENT DATE: 20150701
